FAERS Safety Report 22664529 (Version 2)
Quarter: 2023Q4

REPORT INFORMATION
  Report Type: Spontaneous
  Country: FR (occurrence: FR)
  Receive Date: 20230703
  Receipt Date: 20231007
  Transmission Date: 20240110
  Serious: Yes (Life-Threatening, Other)
  Sender: FDA-Public Use
  Company Number: FR-AFSSAPS-AN2023000779

PATIENT
  Age: 68 Year
  Sex: Male
  Weight: 84 kg

DRUGS (7)
  1. PREDNISOLONE [Suspect]
     Active Substance: PREDNISOLONE
     Indication: Sinusitis
     Dosage: 80 MILLIGRAM, ONCE A DAY
     Route: 048
     Dates: start: 20230518, end: 20230520
  2. AUGMENTIN [Suspect]
     Active Substance: AMOXICILLIN\CLAVULANATE POTASSIUM
     Indication: Sinusitis
     Dosage: 3 DOSAGE FORM, ONCE A DAY
     Route: 048
     Dates: start: 20230516, end: 20230524
  3. OPDIVO [Suspect]
     Active Substance: NIVOLUMAB
     Indication: Metastatic malignant melanoma
     Dosage: 480 MILLIGRAM EVERY MONTH
     Route: 042
     Dates: start: 20221223, end: 20230407
  4. OPDIVO [Suspect]
     Active Substance: NIVOLUMAB
     Dosage: 84 MILLIGRAM TOTAL
     Route: 042
     Dates: start: 20230504, end: 20230504
  5. SACCHAROMYCES CEREVISIAE [Suspect]
     Active Substance: SACCHAROMYCES CEREVISIAE
     Indication: Prophylaxis against diarrhoea
     Dosage: 1 DOSAGE FORM, ONCE A DAY
     Route: 048
     Dates: start: 20230516, end: 20230524
  6. YERVOY [Suspect]
     Active Substance: IPILIMUMAB
     Indication: Metastatic malignant melanoma
     Dosage: 250 MILLIGRAMTOTAL
     Route: 042
     Dates: start: 20230504, end: 20230504
  7. SACCHAROMYCES CEREVISIAE [Suspect]
     Active Substance: SACCHAROMYCES CEREVISIAE
     Indication: Prophylaxis against diarrhoea
     Dosage: UNK
     Route: 065
     Dates: start: 20230516, end: 20230524

REACTIONS (2)
  - Drug reaction with eosinophilia and systemic symptoms [Recovering/Resolving]
  - Meningitis aseptic [Recovering/Resolving]

NARRATIVE: CASE EVENT DATE: 20230524
